FAERS Safety Report 15406210 (Version 1)
Quarter: 2018Q3

REPORT INFORMATION
  Report Type: Spontaneous
  Country: US (occurrence: US)
  Receive Date: 20180918
  Receipt Date: 20180918
  Transmission Date: 20181010
  Serious: Yes (Death)
  Sender: FDA-Public Use
  Company Number: None

PATIENT
  Age: 36 Year
  Sex: Female
  Weight: 103.05 kg

DRUGS (9)
  1. YESCARTA [Suspect]
     Active Substance: AXICABTAGENE CILOLEUCEL
     Indication: LYMPHOMA
     Route: 042
     Dates: start: 20180910, end: 20180910
  2. KEPPRA [Concomitant]
     Active Substance: LEVETIRACETAM
  3. DILAUDID [Concomitant]
     Active Substance: HYDROMORPHONE HYDROCHLORIDE
  4. VANCOMYCIN [Concomitant]
     Active Substance: VANCOMYCIN
  5. VORINAZOLE [Concomitant]
  6. ACYCLOVIR. [Concomitant]
     Active Substance: ACYCLOVIR
  7. CEFEPIME [Concomitant]
     Active Substance: CEFEPIME HYDROCHLORIDE
  8. RESTORIL [Concomitant]
     Active Substance: TEMAZEPAM
  9. ZARXIO [Concomitant]
     Active Substance: FILGRASTIM-SNDZ

REACTIONS (4)
  - Unresponsive to stimuli [None]
  - Brain herniation [None]
  - Areflexia [None]
  - Brain oedema [None]

NARRATIVE: CASE EVENT DATE: 20180917
